FAERS Safety Report 11691177 (Version 1)
Quarter: 2015Q4

REPORT INFORMATION
  Report Type: Spontaneous
  Country: US (occurrence: US)
  Receive Date: 20151102
  Receipt Date: 20151102
  Transmission Date: 20160304
  Serious: No
  Sender: FDA-Public Use
  Company Number: US-BAYER-2015-451245

PATIENT
  Age: 75 Year
  Sex: Female
  Weight: 71.66 kg

DRUGS (3)
  1. ALEVE [Suspect]
     Active Substance: NAPROXEN SODIUM
     Indication: ANALGESIC THERAPY
     Dosage: 1 DF, PRN
     Route: 048
  2. ALEVE PM [Suspect]
     Active Substance: DIPHENHYDRAMINE HYDROCHLORIDE\NAPROXEN SODIUM
     Indication: PAIN IN EXTREMITY
     Dosage: 1 DF, ONCE
     Route: 048
     Dates: start: 20151019, end: 20151019
  3. ALEVE PM [Suspect]
     Active Substance: DIPHENHYDRAMINE HYDROCHLORIDE\NAPROXEN SODIUM
     Indication: SLEEP DISORDER THERAPY

REACTIONS (9)
  - Paraesthesia [None]
  - Product use issue [None]
  - Tremor [None]
  - Product use issue [None]
  - Drug ineffective [None]
  - Drug ineffective [None]
  - Insomnia [None]
  - Hypersensitivity [None]
  - Feeling abnormal [None]

NARRATIVE: CASE EVENT DATE: 20151019
